FAERS Safety Report 16716055 (Version 5)
Quarter: 2023Q4

REPORT INFORMATION
  Report Type: Spontaneous
  Country: FR (occurrence: FR)
  Receive Date: 20190819
  Receipt Date: 20231024
  Transmission Date: 20240109
  Serious: Yes (Hospitalization, Other)
  Sender: FDA-Public Use
  Company Number: FR-NOVPHSZ-PHHY2019FR055649

PATIENT
  Age: 83 Year
  Sex: Female

DRUGS (1)
  1. LATANOPROST [Suspect]
     Active Substance: LATANOPROST
     Indication: Glaucoma
     Dosage: IN BOTH EYES, DURING 10 DAYS ON NOV-2017
     Route: 047
     Dates: start: 201711

REACTIONS (4)
  - Metamorphopsia [Recovered/Resolved]
  - Visual acuity reduced [Recovering/Resolving]
  - Corneal epithelium defect [Unknown]
  - Macular oedema [Recovered/Resolved]
